FAERS Safety Report 5469711-3 (Version None)
Quarter: 2007Q3

REPORT INFORMATION
  Report Type: 
  Country: None (occurrence: None)
  Receive Date: 20070926
  Receipt Date: 20070926
  Transmission Date: 20080115
  Serious: Yes (Life-Threatening, Hospitalization)
  Sender: FDA-Public Use
  Company Number: None

PATIENT
  Age: 71 Year
  Sex: Female
  Weight: 52 kg

DRUGS (11)
  1. SENSIPAR [Suspect]
     Indication: HYPERPARATHYROIDISM
     Dosage: 60 MG EVERY OTHER DAY PO
     Route: 048
  2. ALLOPURINOL [Concomitant]
  3. PREDNISONE [Concomitant]
  4. PREMARIN [Concomitant]
  5. QUININE [Concomitant]
  6. ASPIRIN [Concomitant]
  7. SENNA [Concomitant]
  8. DIATX [Concomitant]
  9. MEGACE [Concomitant]
  10. FISH OIL [Concomitant]
  11. SENSIPAR [Concomitant]

REACTIONS (5)
  - CARDIAC ARREST [None]
  - HYPOCALCAEMIA [None]
  - HYPOKALAEMIA [None]
  - VENTRICULAR FIBRILLATION [None]
  - VENTRICULAR TACHYCARDIA [None]
